FAERS Safety Report 9627100 (Version 5)
Quarter: 2014Q2

REPORT INFORMATION
  Report Type: Spontaneous
  Country: CN (occurrence: CN)
  Receive Date: 20131016
  Receipt Date: 20140514
  Transmission Date: 20141212
  Serious: Yes (Hospitalization, Other)
  Sender: FDA-Public Use
  Company Number: PHHY2013CN101916

PATIENT
  Age: 68 Year
  Sex: Female
  Weight: 50 kg

DRUGS (15)
  1. ACLASTA [Suspect]
     Indication: OSTEOPOROSIS
     Dosage: 5 MG ONCE A YEAR
     Route: 042
     Dates: start: 20130822, end: 20130822
  2. CALTRATE + VITAMIN D [Concomitant]
     Indication: OSTEOPOROSIS
     Dosage: 600 MG, QD
     Route: 048
     Dates: start: 20130821, end: 20130912
  3. VITAMIIN C [Concomitant]
     Dosage: 2 G, UNK
     Route: 065
     Dates: start: 20130823
  4. VITAMIIN C [Concomitant]
     Dosage: 2 G, UNK
     Route: 065
     Dates: start: 20130824
  5. CELECOXIB [Concomitant]
     Route: 048
     Dates: start: 20130822
  6. ROCALTROL [Concomitant]
     Indication: OSTEOPOROSIS
     Dosage: 0.25 G, QD
     Route: 048
     Dates: start: 20130821, end: 20130912
  7. INDOMETHACIN [Concomitant]
     Dates: start: 20130823
  8. INDOMETHACIN [Concomitant]
     Dates: start: 20130824
  9. IBUPROFEN [Concomitant]
     Dosage: SUSTAINED RELEASE CAPSULES
     Route: 048
     Dates: start: 20130823
  10. ALFA-D3 [Concomitant]
     Route: 048
     Dates: start: 20130820
  11. AMLODIPINE [Concomitant]
     Route: 048
     Dates: start: 20130825
  12. CALCIUM CARBONATE D3 [Concomitant]
     Route: 048
     Dates: start: 20130820
  13. BUFFERIN [Concomitant]
     Indication: PYREXIA
     Route: 048
     Dates: start: 20130825
  14. VITAMIN B 6 [Concomitant]
     Dosage: 200 MG, UNK
     Route: 065
     Dates: start: 20130823
  15. VITAMIN B 6 [Concomitant]
     Dosage: 200 MG, UNK
     Dates: start: 20130824

REACTIONS (18)
  - Amaurosis [Unknown]
  - Pyrexia [Recovering/Resolving]
  - Incontinence [Unknown]
  - Periorbital contusion [Recovering/Resolving]
  - Blood pressure decreased [Unknown]
  - Arrhythmia [Recovering/Resolving]
  - Neutrophilia [Recovering/Resolving]
  - Heart rate increased [Unknown]
  - Syncope [Recovering/Resolving]
  - Insomnia [Recovering/Resolving]
  - Abdominal pain [Recovering/Resolving]
  - Headache [Unknown]
  - Arthralgia [Recovering/Resolving]
  - Myalgia [Recovering/Resolving]
  - Pain in extremity [Recovering/Resolving]
  - Red blood cell count decreased [Recovering/Resolving]
  - Platelet count increased [Recovering/Resolving]
  - Neutrophil count increased [Recovering/Resolving]
